FAERS Safety Report 8114231-0 (Version None)
Quarter: 2012Q1

REPORT INFORMATION
  Report Type: 
  Country: None (occurrence: None)
  Receive Date: 20120205
  Receipt Date: 20120125
  Transmission Date: 20120608
  Serious: Yes (Hospitalization)
  Sender: FDA-Public Use
  Company Number: DE-BRISTOL-MYERS SQUIBB COMPANY-16380248

PATIENT
  Age: 42 Year
  Sex: Male

DRUGS (1)
  1. LYSODREN [Suspect]
     Indication: ADRENAL CARCINOMA
     Dosage: INTERRPUTED ON 28DEC11 AND REINTRODUCED ON 12JAN12

REACTIONS (7)
  - INFECTION [None]
  - INFLAMMATORY MARKER INCREASED [None]
  - PYREXIA [None]
  - DIZZINESS [None]
  - DRUG LEVEL ABOVE THERAPEUTIC [None]
  - FATIGUE [None]
  - MUSCULAR WEAKNESS [None]
